FAERS Safety Report 5425361-6 (Version None)
Quarter: 2007Q3

REPORT INFORMATION
  Report Type: 
  Country: None (occurrence: None)
  Receive Date: 20070824
  Receipt Date: 20070810
  Transmission Date: 20080115
  Serious: Yes (Life-Threatening, Hospitalization, Disabling, Other)
  Sender: FDA-Public Use
  Company Number: CA-PFIZER INC-2007054710

PATIENT
  Sex: Male
  Weight: 115 kg

DRUGS (18)
  1. SUTENT [Suspect]
     Indication: RENAL CELL CARCINOMA STAGE UNSPECIFIED
     Route: 048
     Dates: start: 20061201, end: 20070610
  2. CHOLESTEROL- AND TRIGLYCERIDE REDUCERS [Concomitant]
  3. INSULIN [Concomitant]
  4. NORVASC [Concomitant]
  5. HYDROCHLOROTHIAZIDE [Concomitant]
  6. METOPROLOL SUCCINATE [Concomitant]
  7. AVANDIA [Concomitant]
  8. DIAMICRON [Concomitant]
  9. EFFEXOR [Concomitant]
  10. ASPIRIN [Concomitant]
  11. BISOPROLOL [Concomitant]
  12. ROSUVASTATIN [Concomitant]
  13. SALMON OIL [Concomitant]
  14. NOVORAPID [Concomitant]
  15. GLYCERYL TRINITRATE [Concomitant]
  16. ANUSOL [Concomitant]
  17. INSULIN GLARGINE [Concomitant]
  18. CLOPIDOGREL [Concomitant]

REACTIONS (20)
  - BLOOD CHOLESTEROL INCREASED [None]
  - BLOOD THYROID STIMULATING HORMONE ABNORMAL [None]
  - DYSLIPIDAEMIA [None]
  - DYSPNOEA [None]
  - FATIGUE [None]
  - HAEMATOCRIT DECREASED [None]
  - HAEMOGLOBIN DECREASED [None]
  - HYPERGLYCAEMIA [None]
  - LEFT ATRIAL DILATATION [None]
  - MEAN CELL HAEMOGLOBIN CONCENTRATION INCREASED [None]
  - MEAN CELL HAEMOGLOBIN INCREASED [None]
  - MEAN PLATELET VOLUME DECREASED [None]
  - MITRAL VALVE INCOMPETENCE [None]
  - MYOCARDIAL INFARCTION [None]
  - RED BLOOD CELL COUNT DECREASED [None]
  - RED CELL DISTRIBUTION WIDTH INCREASED [None]
  - RENAL FAILURE CHRONIC [None]
  - THYROXINE ABNORMAL [None]
  - TRI-IODOTHYRONINE UPTAKE ABNORMAL [None]
  - VENTRICULAR DYSFUNCTION [None]
